FAERS Safety Report 15058515 (Version 1)
Quarter: 2018Q2

REPORT INFORMATION
  Report Type: Spontaneous
  Country: DE (occurrence: DE)
  Receive Date: 20180625
  Receipt Date: 20180625
  Transmission Date: 20180711
  Serious: Yes (Hospitalization)
  Sender: FDA-Public Use
  Company Number: PHHY2017DE201839

PATIENT
  Age: 73 Year
  Sex: Male
  Weight: 89 kg

DRUGS (13)
  1. ABRAXANE [Suspect]
     Active Substance: PACLITAXEL
     Dosage: 100 MG/M2, QD
     Route: 041
     Dates: start: 20170710
  2. SPIRIVA [Concomitant]
     Active Substance: TIOTROPIUM BROMIDE MONOHYDRATE
     Indication: PROPHYLAXIS
     Dosage: 1 OT, QD (18 UNKNOWN)
     Route: 055
  3. GRANISETRON [Concomitant]
     Active Substance: GRANISETRON
     Indication: PROPHYLAXIS
     Dosage: 1 MG, UNK
     Route: 041
  4. ABRAXANE [Suspect]
     Active Substance: PACLITAXEL
     Dosage: 100 MG/M2, UNK
     Route: 041
     Dates: start: 20170913, end: 20170927
  5. DEXAMETHASONE. [Concomitant]
     Active Substance: DEXAMETHASONE
     Indication: PROPHYLAXIS
     Dosage: 20 MG, UNK
     Route: 041
  6. PANTOPRAZOL BETA [Concomitant]
     Indication: PROPHYLAXIS
     Dosage: 40 MG, QD
     Route: 048
  7. RAMIPRIL BETA COMP [Concomitant]
     Indication: PROPHYLAXIS
     Dosage: 5 MG, QD
     Route: 048
  8. CIPRALEX [Concomitant]
     Active Substance: ESCITALOPRAM OXALATE
     Indication: PROPHYLAXIS
     Dosage: 10 MG, QD
     Route: 048
  9. CARBOPLATIN. [Suspect]
     Active Substance: CARBOPLATIN
     Indication: NON-SMALL CELL LUNG CANCER
     Dosage: 540 MGXMIN/ML
     Route: 041
  10. ABRAXANE [Suspect]
     Active Substance: PACLITAXEL
     Indication: NON-SMALL CELL LUNG CANCER
     Dosage: 100 MG/M2, QD
     Route: 041
     Dates: start: 20170624
  11. PREDNISOLONE RATIOPHARM [Concomitant]
     Indication: PROPHYLAXIS
     Dosage: 7.5 MG, QD
     Route: 048
  12. BISOPROLOL-RATIOPHARM [Concomitant]
     Indication: PROPHYLAXIS
     Dosage: 1.25 MG, QD
     Route: 048
  13. MCP RATIOPHARM SF [Concomitant]
     Indication: PROPHYLAXIS
     Dosage: 1 MG, QD
     Route: 065

REACTIONS (6)
  - Anaemia [Recovered/Resolved]
  - Diarrhoea [Recovered/Resolved]
  - Polyneuropathy [Unknown]
  - Anaemia [Recovered/Resolved]
  - Fatigue [Not Recovered/Not Resolved]
  - Tumour necrosis [Recovered/Resolved]

NARRATIVE: CASE EVENT DATE: 201707
